FAERS Safety Report 19009881 (Version 2)
Quarter: 2021Q2

REPORT INFORMATION
  Report Type: Report from Study
  Country: BR (occurrence: BR)
  Receive Date: 20210315
  Receipt Date: 20210512
  Transmission Date: 20210717
  Serious: Yes (Other)
  Sender: FDA-Public Use
  Company Number: NVSC2021BR047711

PATIENT
  Age: 45 Year
  Sex: Female

DRUGS (3)
  1. PIQRAY [Suspect]
     Active Substance: ALPELISIB
     Indication: BREAST CANCER
     Dosage: 300 MG, QD
     Route: 065
     Dates: start: 20201111
  2. FULVESTRANTO [Suspect]
     Active Substance: FULVESTRANT
     Indication: PRODUCT USED FOR UNKNOWN INDICATION
     Dosage: UNK
     Route: 065
  3. PIQRAY [Suspect]
     Active Substance: ALPELISIB
     Dosage: UNK
     Route: 065
     Dates: start: 20210302

REACTIONS (8)
  - Gastrointestinal bacterial infection [Recovered/Resolved]
  - Vomiting [Recovered/Resolved]
  - Retching [Unknown]
  - Diarrhoea [Recovered/Resolved]
  - Wound [Unknown]
  - Pain [Unknown]
  - Malaise [Recovered/Resolved]
  - Malaise [Unknown]

NARRATIVE: CASE EVENT DATE: 20210222
